FAERS Safety Report 13461173 (Version 4)
Quarter: 2017Q3

REPORT INFORMATION
  Report Type: Spontaneous
  Country: KR (occurrence: KR)
  Receive Date: 20170420
  Receipt Date: 20170713
  Transmission Date: 20171127
  Serious: No
  Sender: FDA-Public Use
  Company Number: KR-009507513-1703KOR009685

PATIENT
  Age: 68 Year
  Sex: Male
  Weight: 66.3 kg

DRUGS (46)
  1. EMEND (FOSAPREPITANT DIMEGLUMINE) [Suspect]
     Active Substance: FOSAPREPITANT DIMEGLUMINE
     Dosage: 150 MG, ONCE
     Route: 042
     Dates: start: 20161223, end: 20161223
  2. GEMZAR [Concomitant]
     Active Substance: GEMCITABINE HYDROCHLORIDE
     Indication: LUNG NEOPLASM MALIGNANT
     Dosage: 2175 MG, ONCE (CYCLE 1)
     Route: 042
     Dates: start: 20161202, end: 20161202
  3. GEMZAR [Concomitant]
     Active Substance: GEMCITABINE HYDROCHLORIDE
     Dosage: 2175 MG, ONCE (CYCLE 2)
     Route: 042
     Dates: start: 20161223, end: 20161223
  4. GEMZAR [Concomitant]
     Active Substance: GEMCITABINE HYDROCHLORIDE
     Dosage: 2175 MG, ONCE (CYCLE 4)
     Route: 042
     Dates: start: 20170213, end: 20170213
  5. TAZOPERAN [Concomitant]
     Indication: PROPHYLAXIS
     Dosage: 4.5 G, QID
     Route: 042
     Dates: start: 20170108, end: 20170112
  6. EMEND (FOSAPREPITANT DIMEGLUMINE) [Suspect]
     Active Substance: FOSAPREPITANT DIMEGLUMINE
     Dosage: 150 MG, ONCE
     Route: 042
     Dates: start: 20170306, end: 20170306
  7. GEMZAR [Concomitant]
     Active Substance: GEMCITABINE HYDROCHLORIDE
     Dosage: 2175 MG, ONCE (CYCLE 4)
     Route: 042
     Dates: start: 20170220, end: 20170220
  8. DEXAMETHASONE. [Concomitant]
     Active Substance: DEXAMETHASONE
     Dosage: 8 MG, QD
     Route: 048
     Dates: start: 20170125, end: 20170126
  9. ALOXI [Concomitant]
     Active Substance: PALONOSETRON HYDROCHLORIDE
     Indication: PREMEDICATION
     Dosage: 0.25 MG, ONCE
     Route: 042
     Dates: start: 20161202, end: 20161202
  10. MAGO [Concomitant]
     Indication: CONSTIPATION PROPHYLAXIS
     Dosage: 1 CAPSULE, BID OR PRN
     Route: 048
     Dates: start: 20161224, end: 20161231
  11. EMEND (FOSAPREPITANT DIMEGLUMINE) [Suspect]
     Active Substance: FOSAPREPITANT DIMEGLUMINE
     Dosage: 150 MG, ONCE
     Route: 042
     Dates: start: 20170123, end: 20170123
  12. CISPLATIN. [Concomitant]
     Active Substance: CISPLATIN
     Dosage: 104 MG, ONCE (CYCLE 3)
     Route: 042
     Dates: start: 20170123, end: 20170123
  13. DEXAMETHASONE. [Concomitant]
     Active Substance: DEXAMETHASONE
     Dosage: 8 MG, ONCE
     Route: 042
     Dates: start: 20170124, end: 20170124
  14. DEXAMETHASONE. [Concomitant]
     Active Substance: DEXAMETHASONE
     Dosage: 12 MG, ONCE
     Route: 042
     Dates: start: 20170213, end: 20170213
  15. EMEND (FOSAPREPITANT DIMEGLUMINE) [Suspect]
     Active Substance: FOSAPREPITANT DIMEGLUMINE
     Dosage: 150 MG, ONCE
     Route: 042
     Dates: start: 20170213, end: 20170213
  16. CISPLATIN. [Concomitant]
     Active Substance: CISPLATIN
     Dosage: 104 MG, ONCE (CYCLE 5)
     Route: 042
     Dates: start: 20170306, end: 20170306
  17. GEMZAR [Concomitant]
     Active Substance: GEMCITABINE HYDROCHLORIDE
     Dosage: 2175 MG, ONCE (CYCLE 5)
     Route: 042
     Dates: start: 20170313, end: 20170313
  18. DEXAMETHASONE. [Concomitant]
     Active Substance: DEXAMETHASONE
     Indication: PROPHYLAXIS
     Dosage: 8 MG, ONCE
     Route: 042
     Dates: start: 20161203, end: 20161203
  19. DEXAMETHASONE. [Concomitant]
     Active Substance: DEXAMETHASONE
     Dosage: 12 MG, ONCE
     Route: 042
     Dates: start: 20161223, end: 20161223
  20. DEXAMETHASONE. [Concomitant]
     Active Substance: DEXAMETHASONE
     Dosage: 8 MG, QD
     Route: 048
     Dates: start: 20170215, end: 20170216
  21. DEXAMETHASONE. [Concomitant]
     Active Substance: DEXAMETHASONE
     Dosage: 8 MG, QD
     Route: 048
     Dates: start: 20170308, end: 20170309
  22. ALOXI [Concomitant]
     Active Substance: PALONOSETRON HYDROCHLORIDE
     Dosage: 0.25 MG, ONCE
     Route: 042
     Dates: start: 20170306, end: 20170306
  23. CISPLATIN. [Concomitant]
     Active Substance: CISPLATIN
     Dosage: 104 MG, ONCE (CYCLE 4)
     Route: 042
     Dates: start: 20170213, end: 20170213
  24. GEMZAR [Concomitant]
     Active Substance: GEMCITABINE HYDROCHLORIDE
     Dosage: 2175 MG, ONCE (CYCLE 1)
     Route: 042
     Dates: start: 20161209, end: 20161209
  25. GEMZAR [Concomitant]
     Active Substance: GEMCITABINE HYDROCHLORIDE
     Dosage: 2175 MG, ONCE (CYCLE 2)
     Route: 042
     Dates: start: 20161230, end: 20161230
  26. DEXAMETHASONE. [Concomitant]
     Active Substance: DEXAMETHASONE
     Indication: PREMEDICATION
     Dosage: 12 MG, ONCE
     Route: 042
     Dates: start: 20161202, end: 20161202
  27. DEXAMETHASONE. [Concomitant]
     Active Substance: DEXAMETHASONE
     Dosage: 8 MG, QD
     Route: 048
     Dates: start: 20161225, end: 20161226
  28. GASTER [Concomitant]
     Active Substance: FAMOTIDINE
     Indication: PROPHYLAXIS
     Dosage: 1 TABLET, BID
     Route: 048
     Dates: start: 20161203, end: 20170309
  29. DEXAMETHASONE. [Concomitant]
     Active Substance: DEXAMETHASONE
     Dosage: 8 MG, ONCE
     Route: 042
     Dates: start: 20170214, end: 20170214
  30. DONG A GASTER [Concomitant]
     Indication: PROPHYLAXIS
     Dosage: 20 ML, BID
     Route: 042
     Dates: start: 20161202, end: 20161223
  31. GEMZAR [Concomitant]
     Active Substance: GEMCITABINE HYDROCHLORIDE
     Dosage: 2175 MG, ONCE (CYCLE 3)
     Route: 042
     Dates: start: 20170130, end: 20170130
  32. DEXAMETHASONE. [Concomitant]
     Active Substance: DEXAMETHASONE
     Dosage: 12 MG, ONCE
     Route: 042
     Dates: start: 20170123, end: 20170123
  33. DEXAMETHASONE. [Concomitant]
     Active Substance: DEXAMETHASONE
     Dosage: 5MG/ML, 8 MG, ONCE
     Route: 042
     Dates: start: 20170307, end: 20170307
  34. DEXAMETHASONE. [Concomitant]
     Active Substance: DEXAMETHASONE
     Indication: PROPHYLAXIS
     Dosage: 8 MG, QD
     Route: 048
     Dates: start: 20161204, end: 20161205
  35. ALOXI [Concomitant]
     Active Substance: PALONOSETRON HYDROCHLORIDE
     Dosage: 0.25 MG, ONCE
     Route: 042
     Dates: start: 20161223, end: 20161223
  36. ALOXI [Concomitant]
     Active Substance: PALONOSETRON HYDROCHLORIDE
     Dosage: 0.25 MG, ONCE
     Route: 042
     Dates: start: 20170123, end: 20170123
  37. ALOXI [Concomitant]
     Active Substance: PALONOSETRON HYDROCHLORIDE
     Dosage: 0.25 MG, ONCE
     Route: 042
     Dates: start: 20170213, end: 20170213
  38. METOCLOPRAMIDE. [Concomitant]
     Active Substance: METOCLOPRAMIDE
     Indication: PROPHYLAXIS OF NAUSEA AND VOMITING
     Dosage: 1 TABLET, TID
     Route: 048
     Dates: start: 20161224, end: 20170219
  39. EMEND (FOSAPREPITANT DIMEGLUMINE) [Suspect]
     Active Substance: FOSAPREPITANT DIMEGLUMINE
     Indication: PROPHYLAXIS OF NAUSEA AND VOMITING
     Dosage: 150 MG, ONCE
     Route: 042
     Dates: start: 20161202, end: 20161202
  40. CISPLATIN. [Concomitant]
     Active Substance: CISPLATIN
     Indication: PROPHYLAXIS
     Dosage: 50MG/100ML,104 MG, ONCE (CYCLE 1)
     Route: 042
     Dates: start: 20161202, end: 20161202
  41. CISPLATIN. [Concomitant]
     Active Substance: CISPLATIN
     Dosage: 104 MG, ONCE (CYCLE 2)
     Route: 042
     Dates: start: 20161223, end: 20161223
  42. GEMZAR [Concomitant]
     Active Substance: GEMCITABINE HYDROCHLORIDE
     Dosage: 2175 MG, ONCE (CYCLE 3)
     Route: 042
     Dates: start: 20170123, end: 20170123
  43. GEMZAR [Concomitant]
     Active Substance: GEMCITABINE HYDROCHLORIDE
     Dosage: 2175 MG, ONCE (CYCLE 5)
     Route: 042
     Dates: start: 20170306, end: 20170306
  44. DEXAMETHASONE. [Concomitant]
     Active Substance: DEXAMETHASONE
     Dosage: 8 MG, ONCE
     Route: 042
     Dates: start: 20161224, end: 20161224
  45. DEXAMETHASONE. [Concomitant]
     Active Substance: DEXAMETHASONE
     Dosage: 12 MG, ONCE
     Route: 042
     Dates: start: 20170306, end: 20170306
  46. FAMOTIDINE. [Concomitant]
     Active Substance: FAMOTIDINE
     Indication: PROPHYLAXIS
     Dosage: 20 ML, BID
     Route: 042
     Dates: start: 20161202, end: 20161223

REACTIONS (4)
  - Dyspepsia [Recovered/Resolved]
  - Productive cough [Recovered/Resolved]
  - Drug ineffective [Unknown]
  - Constipation [Recovered/Resolved]

NARRATIVE: CASE EVENT DATE: 20170106
